FAERS Safety Report 11390755 (Version 2)
Quarter: 2015Q3

REPORT INFORMATION
  Report Type: Spontaneous
  Country: US (occurrence: US)
  Receive Date: 20150818
  Receipt Date: 20150825
  Transmission Date: 20151125
  Serious: Yes (Hospitalization)
  Sender: FDA-Public Use
  Company Number: US-ASTRAZENECA-2015SE78713

PATIENT
  Age: 83 Year
  Sex: Female

DRUGS (4)
  1. PULMICORT FLEXHALER [Suspect]
     Active Substance: BUDESONIDE
     Indication: RESPIRATORY DISORDER
     Route: 055
  2. PULMICORT FLEXHALER [Suspect]
     Active Substance: BUDESONIDE
     Indication: ASTHMA
     Route: 055
  3. PULMICORT FLEXHALER [Suspect]
     Active Substance: BUDESONIDE
     Indication: RESPIRATORY DISORDER
     Route: 055
  4. PULMICORT FLEXHALER [Suspect]
     Active Substance: BUDESONIDE
     Indication: ASTHMA
     Route: 055

REACTIONS (7)
  - Emphysema [Unknown]
  - Drug dose omission [Unknown]
  - Cardiac disorder [Unknown]
  - Product quality issue [Unknown]
  - Respiratory disorder [Unknown]
  - Body height decreased [Unknown]
  - Bronchitis [Unknown]

NARRATIVE: CASE EVENT DATE: 201502
